FAERS Safety Report 19557539 (Version 2)
Quarter: 2021Q3

REPORT INFORMATION
  Report Type: Spontaneous
  Country: US (occurrence: US)
  Receive Date: 20210714
  Receipt Date: 20210825
  Transmission Date: 20211014
  Serious: No
  Sender: FDA-Public Use
  Company Number: US-BIOFRONTERA-000747

PATIENT
  Age: 63 Year
  Sex: Female

DRUGS (2)
  1. JNJ VACCINATION [Concomitant]
     Indication: COVID-19 IMMUNISATION
     Dates: start: 20210409
  2. AMELUZ [Suspect]
     Active Substance: AMINOLEVULINIC ACID HYDROCHLORIDE
     Indication: ACTINIC KERATOSIS
     Route: 061
     Dates: start: 20210415, end: 20210415

REACTIONS (6)
  - Vision blurred [Recovered/Resolved]
  - Temporomandibular joint syndrome [Recovered/Resolved]
  - Application site erythema [Unknown]
  - Application site pain [Unknown]
  - Application site warmth [Unknown]
  - Headache [Recovered/Resolved]

NARRATIVE: CASE EVENT DATE: 20210415
